FAERS Safety Report 12082205 (Version 1)
Quarter: 2016Q1

REPORT INFORMATION
  Report Type: Other
  Country: US (occurrence: US)
  Receive Date: 20160217
  Receipt Date: 20160217
  Transmission Date: 20160526
  Serious: No
  Sender: FDA-Public Use
  Company Number: US-ACORDA-ACO_104290_2014

PATIENT
  Sex: Female

DRUGS (2)
  1. AMPYRA [Suspect]
     Active Substance: DALFAMPRIDINE
     Indication: MULTIPLE SCLEROSIS
     Dosage: 10 MG, Q 12 HRS
     Route: 065
     Dates: start: 20100612, end: 20100821
  2. COPAXONE [Suspect]
     Active Substance: GLATIRAMER ACETATE
     Indication: PRODUCT USED FOR UNKNOWN INDICATION
     Dosage: UNK
     Route: 065

REACTIONS (17)
  - Feeling abnormal [Unknown]
  - Depression [Unknown]
  - Insomnia [Unknown]
  - Anxiety [Unknown]
  - Multiple sclerosis [Unknown]
  - Blood disorder [Unknown]
  - Muscle spasticity [Unknown]
  - Musculoskeletal stiffness [Unknown]
  - Fatigue [Unknown]
  - Drug dose omission [Unknown]
  - Asthenia [Unknown]
  - Nausea [Unknown]
  - Memory impairment [Unknown]
  - Pain [Unknown]
  - Activities of daily living impaired [Unknown]
  - Visual impairment [Unknown]
  - Iron deficiency [Unknown]
